FAERS Safety Report 7618741 (Version 2)
Quarter: 2013Q1

REPORT INFORMATION
  Report Type: Report from Study
  Country: US (occurrence: US)
  Receive Date: 20101006
  Receipt Date: 20130207
  Transmission Date: 20140127
  Serious: Yes (Hospitalization)
  Sender: FDA-Public Use
  Company Number: US-ROCHE-725297

PATIENT
  Age: 37 Year
  Sex: Female
  Weight: 84 kg

DRUGS (11)
  1. BEVACIZUMAB [Suspect]
     Indication: BREAST CANCER
     Dosage: LAST DOSE PRIOR TO SAE: 14 SEPT 2010; FORM: VIALS;DOSE LEVEL: 15 MG/KG
     Route: 042
  2. TRASTUZUMAB [Suspect]
     Indication: BREAST CANCER
     Dosage: LAST DOSE PRIOR TO SAE: 14 SEPT 2010; FORM: VIALS; DOSE LEVEL: 6 MG/KG
     Route: 042
  3. DOCETAXEL [Suspect]
     Indication: BREAST CANCER
     Dosage: FORM: VIALS; DOSE LEVEL: 60 MG/M2.
     Route: 042
  4. CARBOPLATIN [Suspect]
     Indication: BREAST CANCER
     Dosage: LAST DOSE PRIOR TO SAE: 14 SEPT 2010; FORM: VIALS, DOSE LEVEL: 5 AUC
     Route: 042
  5. NEXIUM [Concomitant]
     Route: 065
  6. LORATADINE [Concomitant]
     Route: 065
  7. LORAZEPAM [Concomitant]
     Dosage: FREQUENCY: EVERY 4 HOURS PRN.
     Route: 065
  8. ZOFRAN [Concomitant]
     Route: 065
  9. DECADRON [Concomitant]
     Dosage: DAY PRIOR TO AND ON CHEMOTHERAPY DAY2.
     Route: 065
  10. PERCOCET [Concomitant]
     Dosage: EVERY 4 HOURS PRN
     Route: 065
  11. QUININE [Concomitant]
     Route: 065

REACTIONS (2)
  - Neutropenic infection [Recovered/Resolved]
  - Hypokalaemia [Recovered/Resolved]
